FAERS Safety Report 9728547 (Version 3)
Quarter: 2018Q2

REPORT INFORMATION
  Report Type: Spontaneous
  Country: US (occurrence: US)
  Receive Date: 20131204
  Receipt Date: 20180402
  Transmission Date: 20180711
  Serious: Yes (Other)
  Sender: FDA-Public Use
  Company Number: US-SA-2013SA125369

PATIENT
  Age: 79 Year
  Sex: Female

DRUGS (3)
  1. LANTUS SOLOSTAR [Suspect]
     Active Substance: INSULIN GLARGINE
     Route: 051
  2. SOLOSTAR [Concomitant]
     Active Substance: DEVICE
  3. LANTUS [Suspect]
     Active Substance: INSULIN GLARGINE
     Indication: TYPE 1 DIABETES MELLITUS
     Dosage: FROM: 2001. DOSE:7 UNIT(S)
     Route: 051
     Dates: start: 2001

REACTIONS (4)
  - Hypoglycaemia [Unknown]
  - Blood glucose decreased [Unknown]
  - Expired product administered [Unknown]
  - Blindness [Not Recovered/Not Resolved]
